FAERS Safety Report 11655012 (Version 2)
Quarter: 2015Q4

REPORT INFORMATION
  Report Type: Spontaneous
  Country: JP (occurrence: JP)
  Receive Date: 20151023
  Receipt Date: 20151023
  Transmission Date: 20160304
  Serious: Yes (Other)
  Sender: FDA-Public Use
  Company Number: JP-WATSON-2015-22148

PATIENT
  Age: 77 Year
  Sex: Female

DRUGS (4)
  1. CYCLOPHOSPHAMIDE (UNKNOWN) [Suspect]
     Active Substance: CYCLOPHOSPHAMIDE
     Indication: PERIPHERAL T-CELL LYMPHOMA UNSPECIFIED
     Dosage: 750 MG/M2, CYCLICAL (6 CYCLES AT 21-DAY INTERVALS)
     Route: 042
  2. DOXORUBICIN (UNKNOWN) [Suspect]
     Active Substance: DOXORUBICIN
     Indication: PERIPHERAL T-CELL LYMPHOMA UNSPECIFIED
     Dosage: 50 MG/M2, CYCLICAL (6 CYCLES AT 21-DAY INTERVALS)
     Route: 042
  3. PREDNISONE (UNKNOWN) [Suspect]
     Active Substance: PREDNISONE
     Indication: PERIPHERAL T-CELL LYMPHOMA UNSPECIFIED
     Dosage: 40 MG/M2, CYCLICAL (6 CYCLES AT 21-DAY INTERVALS)
     Route: 048
  4. VINCRISTINE (UNKNOWN) [Suspect]
     Active Substance: VINCRISTINE
     Indication: PERIPHERAL T-CELL LYMPHOMA UNSPECIFIED
     Dosage: 1.4 MG/M2, CYCLICAL (6 CYCLES AT 21-DAY INTERVALS)
     Route: 042

REACTIONS (6)
  - Neutropenia [Unknown]
  - Cardiac failure [Unknown]
  - Vomiting [Unknown]
  - Palpitations [Unknown]
  - Nausea [Unknown]
  - Constipation [Unknown]
